FAERS Safety Report 8533906-2 (Version None)
Quarter: 2012Q3

REPORT INFORMATION
  Report Type: 
  Country: None (occurrence: None)
  Receive Date: 20120724
  Receipt Date: 20120713
  Transmission Date: 20120928
  Serious: Yes (Hospitalization, Congenital Anomaly, Other)
  Sender: FDA-Public Use
  Company Number: DE-TEVA-348472GER

PATIENT
  Age: 0 Year
  Sex: Male

DRUGS (3)
  1. VENLAFAXINE [Suspect]
     Route: 064
  2. LEVOTHYROXINE SODIUM [Concomitant]
     Route: 064
  3. ACYCLOVIR [Concomitant]
     Dosage: EXACT TIME OF EXPOSURE UNKNOWN, PROBABLY JANUARY/FEBRUARY 2011
     Route: 064

REACTIONS (2)
  - HYPOTHERMIA NEONATAL [None]
  - TALIPES [None]
